FAERS Safety Report 25032007 (Version 1)
Quarter: 2025Q1

REPORT INFORMATION
  Report Type: Spontaneous
  Country: US (occurrence: US)
  Receive Date: 20250303
  Receipt Date: 20250303
  Transmission Date: 20250409
  Serious: No
  Sender: ROCHE
  Company Number: US-ROCHE-10000218320

PATIENT
  Sex: Male

DRUGS (4)
  1. HEMLIBRA [Suspect]
     Active Substance: EMICIZUMAB-KXWH
     Indication: Factor VIII deficiency
     Dosage: STRENGTH: 300MG/2ML
     Route: 058
     Dates: start: 202208
  2. CLINDAMYCIN [Concomitant]
     Active Substance: CLINDAMYCIN
  3. FLUOCINOLONE [Concomitant]
     Active Substance: FLUOCINOLONE
  4. ELOCTATE [Concomitant]
     Active Substance: EFMOROCTOCOG ALFA

REACTIONS (2)
  - Alopecia [Unknown]
  - Ear disorder [Unknown]
